FAERS Safety Report 25016762 (Version 1)
Quarter: 2025Q1

REPORT INFORMATION
  Report Type: Spontaneous
  Country: US (occurrence: US)
  Receive Date: 20250227
  Receipt Date: 20250227
  Transmission Date: 20250409
  Serious: No
  Sender: UCB
  Company Number: US-UCBSA-2024007807

PATIENT
  Age: 42 Year
  Sex: Female

DRUGS (8)
  1. KEPPRA [Suspect]
     Active Substance: LEVETIRACETAM
     Indication: Seizure
  2. ATIVAN [Concomitant]
     Active Substance: LORAZEPAM
     Indication: Status epilepticus
  3. ATIVAN [Concomitant]
     Active Substance: LORAZEPAM
     Indication: Catatonia
     Dosage: 2 MILLIGRAM, 3X/DAY (TID)
     Route: 042
  4. ATIVAN [Concomitant]
     Active Substance: LORAZEPAM
     Dosage: 5 MILLIGRAM, 3X/DAY (TID)
     Route: 042
  5. ATIVAN [Concomitant]
     Active Substance: LORAZEPAM
     Dosage: 6 MILLIGRAM, 3X/DAY (TID)
     Route: 042
  6. ATIVAN [Concomitant]
     Active Substance: LORAZEPAM
     Dosage: 7 MILLIGRAM, 3X/DAY (TID)
     Route: 042
  7. METHYLPREDNISOLONE [Concomitant]
     Active Substance: METHYLPREDNISOLONE
     Indication: Encephalitis brain stem
     Route: 042
  8. HUMAN IMMUNOGLOBULIN G [Concomitant]
     Active Substance: HUMAN IMMUNOGLOBULIN G
     Indication: Product used for unknown indication
     Route: 042

REACTIONS (1)
  - Agitation [Unknown]
